FAERS Safety Report 9484430 (Version 3)
Quarter: 2013Q3

REPORT INFORMATION
  Report Type: Spontaneous
  Country: US (occurrence: US)
  Receive Date: 20130828
  Receipt Date: 20130913
  Transmission Date: 20140515
  Serious: Yes (Hospitalization, Other)
  Sender: FDA-Public Use
  Company Number: US-INCYTE CORPORATION-2013IN001891

PATIENT
  Age: 65 Year
  Sex: Male

DRUGS (14)
  1. JAKAFI [Suspect]
     Indication: MYELOFIBROSIS
     Dosage: 20 MG, QD
  2. JAKAFI [Suspect]
     Dosage: 20 MG, QD
  3. ALBUTEROL [Concomitant]
  4. ALLOPURINOL [Concomitant]
  5. NORVASC [Concomitant]
  6. BABY ASPIRIN [Concomitant]
  7. PLAVIX [Concomitant]
  8. FLONASE [Concomitant]
  9. TOCOPHEROL [Concomitant]
  10. PROTONIX [Concomitant]
  11. SIMVASTATIN [Concomitant]
  12. SPIRIVA [Concomitant]
  13. TORASEMIDE [Concomitant]
  14. NITRO-DUR [Concomitant]

REACTIONS (8)
  - Pneumonia [Unknown]
  - Toxoplasmosis [Unknown]
  - Eye infection toxoplasmal [Unknown]
  - Lymphopenia [Unknown]
  - General physical health deterioration [Unknown]
  - Platelet count increased [Unknown]
  - Haemoglobin decreased [Unknown]
  - Haematocrit decreased [Unknown]
